FAERS Safety Report 20421305 (Version 1)
Quarter: 2022Q1

REPORT INFORMATION
  Report Type: Spontaneous
  Country: US (occurrence: None)
  Receive Date: 20220203
  Receipt Date: 20220203
  Transmission Date: 20220423
  Serious: Yes (Hospitalization)
  Sender: FDA-Public Use
  Company Number: None

PATIENT
  Age: 37 Year
  Sex: Female

DRUGS (1)
  1. MELOXICAM [Suspect]
     Active Substance: MELOXICAM
     Indication: Pain
     Dates: start: 20200903, end: 20211215

REACTIONS (4)
  - Nausea [None]
  - Vomiting [None]
  - Gastritis [None]
  - Therapy interrupted [None]

NARRATIVE: CASE EVENT DATE: 20211219
